FAERS Safety Report 6332110-6 (Version None)
Quarter: 2009Q3

REPORT INFORMATION
  Report Type: 
  Country: None (occurrence: None)
  Receive Date: 20090827
  Receipt Date: 20090827
  Transmission Date: 20100115
  Serious: Yes (Hospitalization)
  Sender: FDA-Public Use
  Company Number: None

PATIENT
  Sex: Female
  Weight: 24.5 kg

DRUGS (5)
  1. MERCAPTOPURINE [Suspect]
     Dosage: 1300 MG
  2. METHOTREXATE [Suspect]
     Dosage: 152 MG
  3. VINCRISTINE SULFATE [Suspect]
     Dosage: 2.7 MG
  4. DEXAMETHASONE [Suspect]
     Dosage: 50 MG
  5. BACTRIM [Concomitant]

REACTIONS (20)
  - ACUTE HEPATIC FAILURE [None]
  - ANAEMIA [None]
  - ASCITES [None]
  - CHAPPED LIPS [None]
  - CHOLECYSTITIS [None]
  - CHOLECYSTITIS INFECTIVE [None]
  - COAGULOPATHY [None]
  - ENCEPHALOPATHY [None]
  - ERYTHEMA [None]
  - FEBRILE NEUTROPENIA [None]
  - GALLBLADDER DISORDER [None]
  - GALLBLADDER OEDEMA [None]
  - KAWASAKI'S DISEASE [None]
  - LEUKAEMIC INFILTRATION HEPATIC [None]
  - LOBAR PNEUMONIA [None]
  - PLEURAL EFFUSION [None]
  - SKIN CHAPPED [None]
  - STOMATITIS [None]
  - THROMBOCYTOPENIA [None]
  - VIRAL INFECTION [None]
